FAERS Safety Report 13702744 (Version 1)
Quarter: 2017Q2

REPORT INFORMATION
  Report Type: Spontaneous
  Country: US (occurrence: US)
  Receive Date: 20170629
  Receipt Date: 20170629
  Transmission Date: 20170830
  Serious: No
  Sender: FDA-Public Use
  Company Number: US-JNJFOC-20170524694

PATIENT
  Sex: Female

DRUGS (5)
  1. ZYPREXA ZYDIS [Concomitant]
     Active Substance: OLANZAPINE
     Route: 065
     Dates: start: 201702
  2. LATUDA [Concomitant]
     Active Substance: LURASIDONE HYDROCHLORIDE
     Route: 065
     Dates: start: 201701
  3. COGENTIN [Concomitant]
     Active Substance: BENZTROPINE MESYLATE
     Route: 065
     Dates: start: 201608
  4. HALDOL DECANOATE [Suspect]
     Active Substance: HALOPERIDOL DECANOATE
     Indication: SCHIZOAFFECTIVE DISORDER
     Route: 030
     Dates: start: 201608
  5. HYDROXYZINE [Concomitant]
     Active Substance: HYDROXYZINE HYDROCHLORIDE
     Route: 065
     Dates: start: 201702

REACTIONS (1)
  - Injection site mass [Not Recovered/Not Resolved]
